FAERS Safety Report 15815157 (Version 1)
Quarter: 2019Q1

REPORT INFORMATION
  Report Type: Spontaneous
  Country: GB (occurrence: GB)
  Receive Date: 20190112
  Receipt Date: 20190112
  Transmission Date: 20190417
  Serious: Yes (Hospitalization, Disabling)
  Sender: FDA-Public Use
  Company Number: GB-ACCORD-101310

PATIENT
  Age: 75 Year
  Sex: Female

DRUGS (1)
  1. RAMIPRIL. [Suspect]
     Active Substance: RAMIPRIL
     Indication: PRODUCT USED FOR UNKNOWN INDICATION
     Route: 048

REACTIONS (3)
  - Fall [Unknown]
  - Urticaria [Unknown]
  - Syncope [Unknown]

NARRATIVE: CASE EVENT DATE: 20180313
